FAERS Safety Report 25112223 (Version 1)
Quarter: 2025Q1

REPORT INFORMATION
  Report Type: Spontaneous
  Country: US (occurrence: US)
  Receive Date: 20250324
  Receipt Date: 20250324
  Transmission Date: 20250408
  Serious: No
  Sender: UCB
  Company Number: US-UCBSA-2024003686

PATIENT
  Age: 65 Year
  Sex: Male

DRUGS (4)
  1. BRIVARACETAM [Suspect]
     Active Substance: BRIVARACETAM
     Indication: Delusion of replacement
  2. BRIVARACETAM [Suspect]
     Active Substance: BRIVARACETAM
     Indication: Off label use
  3. CARBAMAZEPINE [Concomitant]
     Active Substance: CARBAMAZEPINE
     Indication: Delusion of replacement
  4. OLANZAPINE [Concomitant]
     Active Substance: OLANZAPINE
     Indication: Delusion of replacement

REACTIONS (1)
  - No adverse event [Unknown]
